FAERS Safety Report 8812641 (Version 1)
Quarter: 2012Q4

REPORT INFORMATION
  Report Type: 
  Country: NO (occurrence: NO)
  Receive Date: 20120927
  Receipt Date: 20120927
  Transmission Date: 20130627
  Serious: Yes (Other)
  Sender: FDA-Public Use
  Company Number: PHHY2012NO061574

PATIENT
  Sex: Male

DRUGS (6)
  1. AZATHIOPRINE [Suspect]
  2. CYCLOPHOSPHAMIDE [Suspect]
     Dosage: 79 g, UNK
  3. CICLOSPORIN [Suspect]
  4. RITUXIMAB [Suspect]
     Dates: start: 2008
  5. MYCOPHENOLATE MOFETIL [Concomitant]
  6. IMMUNOGLOBULINS [Concomitant]

REACTIONS (2)
  - Neutropenia [Unknown]
  - Leukopenia [Unknown]
